FAERS Safety Report 9513261 (Version 6)
Quarter: 2014Q3

REPORT INFORMATION
  Report Type: Spontaneous
  Country: US (occurrence: US)
  Receive Date: 20130910
  Receipt Date: 20140905
  Transmission Date: 20150326
  Serious: Yes (Other)
  Sender: FDA-Public Use
  Company Number: US-009507513-1309USA001645

PATIENT
  Sex: Male
  Weight: 86.17 kg

DRUGS (7)
  1. FINASTERIDE. [Suspect]
     Active Substance: FINASTERIDE
     Dosage: 1 MG, QD
     Route: 048
  2. FINASTERIDE. [Suspect]
     Active Substance: FINASTERIDE
     Dosage: 1.25 MG, QD
  3. LEXAPRO [Concomitant]
     Active Substance: ESCITALOPRAM OXALATE
     Indication: DEPRESSION
     Dosage: 10 MG, QAM
     Route: 048
  4. PROPECIA [Suspect]
     Active Substance: FINASTERIDE
     Dosage: 1 MG, QD
     Route: 048
     Dates: start: 20111130, end: 20121031
  5. CELEXA [Concomitant]
     Active Substance: CITALOPRAM HYDROBROMIDE
     Indication: ANXIETY
     Dosage: 20-40 MG QD
     Route: 048
  6. LEXAPRO [Concomitant]
     Active Substance: ESCITALOPRAM OXALATE
     Indication: ANXIETY
  7. PROPECIA [Suspect]
     Active Substance: FINASTERIDE
     Indication: ANDROGENETIC ALOPECIA
     Dosage: 1 MG, QD
     Route: 048
     Dates: start: 20090626, end: 20110304

REACTIONS (31)
  - Hallucination [Unknown]
  - Aspartate aminotransferase increased [Unknown]
  - Cognitive disorder [Unknown]
  - Breast mass [Unknown]
  - Bipolar disorder [Unknown]
  - Insomnia [Unknown]
  - Depression [Unknown]
  - Drug hypersensitivity [Unknown]
  - Erectile dysfunction [Unknown]
  - Fatigue [Unknown]
  - Anxiety [Unknown]
  - Food allergy [Unknown]
  - Major depression [Unknown]
  - Blood testosterone decreased [Unknown]
  - Anxiety [Unknown]
  - Malaise [Unknown]
  - Adverse drug reaction [Unknown]
  - Hallucination, auditory [Unknown]
  - Breast swelling [Unknown]
  - Drug ineffective [Unknown]
  - Suicidal ideation [Unknown]
  - Adverse drug reaction [Unknown]
  - Incorrect dose administered [Unknown]
  - Mental disorder [Unknown]
  - Somnolence [Unknown]
  - Milk allergy [Unknown]
  - Sexual dysfunction [Unknown]
  - Drug hypersensitivity [Unknown]
  - Upper respiratory tract infection [Unknown]
  - Attention deficit/hyperactivity disorder [Unknown]
  - Testicular failure [Unknown]

NARRATIVE: CASE EVENT DATE: 2009
